FAERS Safety Report 21509915 (Version 1)
Quarter: 2022Q4

REPORT INFORMATION
  Report Type: Spontaneous
  Country: JP (occurrence: JP)
  Receive Date: 20221026
  Receipt Date: 20221026
  Transmission Date: 20230113
  Serious: No
  Sender: FDA-Public Use
  Company Number: JP-JAZZ-2022-JP-021837

PATIENT
  Age: 1 Year
  Sex: Male

DRUGS (1)
  1. DEFITELIO [Suspect]
     Active Substance: DEFIBROTIDE SODIUM
     Indication: Pulmonary veno-occlusive disease
     Dosage: UNK
     Route: 042

REACTIONS (1)
  - Off label use [Unknown]
